FAERS Safety Report 9537234 (Version 2)
Quarter: 2013Q3

REPORT INFORMATION
  Report Type: Spontaneous
  Country: US (occurrence: US)
  Receive Date: 20130919
  Receipt Date: 20130919
  Transmission Date: 20140515
  Serious: No
  Sender: FDA-Public Use
  Company Number: US-PURDUE-USA-2012-0093600

PATIENT
  Age: 38 Year
  Sex: Female
  Weight: 68.03 kg

DRUGS (1)
  1. INTERMEZZO [Suspect]
     Indication: INSOMNIA
     Dosage: 3.75 MG, UNK
     Route: 048
     Dates: start: 20120611, end: 20120706

REACTIONS (2)
  - Depression [Recovered/Resolved]
  - Incorrect dose administered [Unknown]
